FAERS Safety Report 10880424 (Version 3)
Quarter: 2015Q2

REPORT INFORMATION
  Report Type: Report from Study
  Country: CZ (occurrence: CZ)
  Receive Date: 20150303
  Receipt Date: 20150422
  Transmission Date: 20150821
  Serious: Yes (Hospitalization)
  Sender: FDA-Public Use
  Company Number: CZ-AMGEN-CZECT2015018666

PATIENT
  Age: 31 Year
  Sex: Male
  Weight: 68 kg

DRUGS (22)
  1. BLINATUMOMAB [Suspect]
     Active Substance: BLINATUMOMAB
     Indication: ACUTE LYMPHOCYTIC LEUKAEMIA
     Dosage: 28 MUG, UNK
     Route: 041
     Dates: start: 20140815
  2. ZINNAT                             /00454602/ [Concomitant]
     Dosage: 500 MG, UNK
     Route: 048
     Dates: start: 20141215
  3. PAMYCON [Concomitant]
     Dosage: 1-2 GTT, UNK
     Route: 045
     Dates: start: 20141215, end: 20150218
  4. FROMILID [Concomitant]
     Active Substance: CLARITHROMYCIN
     Dosage: 500 MG, UNK
     Route: 048
     Dates: start: 20150119, end: 20150219
  5. TRALGIT [Concomitant]
     Active Substance: TRAMADOL
     Dosage: 50 TO 100 MG, UNK
     Route: 048
     Dates: start: 20141205, end: 20150222
  6. LEXAURIN [Concomitant]
     Active Substance: BROMAZEPAM
     Dosage: 1.5-3 MG, UNK
     Route: 048
     Dates: start: 20150220, end: 20150226
  7. ANALGIN                            /00374501/ [Concomitant]
     Dosage: 1 UNK, UNK
     Route: 058
     Dates: start: 20150209, end: 20150209
  8. ZOVIRAX [Concomitant]
     Active Substance: ACYCLOVIR
     Dosage: 400 MG, UNK
     Route: 048
     Dates: start: 20141110
  9. SERTIVAN [Concomitant]
     Dosage: 50 MG, UNK
     Route: 048
     Dates: start: 201401
  10. PIPERACILLIN AND TAZOBACTAM [Concomitant]
     Active Substance: PIPERACILLIN SODIUM\TAZOBACTAM SODIUM
     Dosage: UNK G, UNK
     Route: 042
     Dates: start: 20150209, end: 20150213
  11. ACC LONG [Concomitant]
     Dosage: 1 UNK, UNK
     Route: 048
     Dates: start: 20150205, end: 20150210
  12. DEXAMETHASONE. [Concomitant]
     Active Substance: DEXAMETHASONE
     Dosage: 4 TO 40 MG, UNK
     Dates: start: 20140815, end: 20150221
  13. LYRICA [Concomitant]
     Active Substance: PREGABALIN
     Dosage: 75 MG, UNK
     Route: 048
     Dates: start: 20150220, end: 20150220
  14. MEGAMOX                            /00756801/ [Concomitant]
     Dosage: 1 G, UNK
     Route: 048
     Dates: start: 20141211, end: 20150225
  15. TAMIFLU [Concomitant]
     Active Substance: OSELTAMIVIR PHOSPHATE
     Dosage: 75 MG, UNK
     Route: 048
     Dates: start: 20141212, end: 20150226
  16. PARALEN                            /00020001/ [Concomitant]
     Dosage: 500-1000 MG, UNK
     Route: 048
     Dates: start: 20141205, end: 20150226
  17. FROMILID UNO [Concomitant]
     Dosage: 500 MG, UNK
     Route: 048
     Dates: start: 20141215, end: 20141222
  18. OMEPRAZOL                          /00661201/ [Concomitant]
     Active Substance: OMEPRAZOLE
     Dosage: 20 MG, UNK
     Route: 048
     Dates: start: 20150219, end: 20150225
  19. CIPROFLOXACIN. [Concomitant]
     Active Substance: CIPROFLOXACIN
     Dosage: 500 MG, UNK
     Route: 048
     Dates: start: 20141204, end: 20150105
  20. KIOVIG [Concomitant]
     Active Substance: HUMAN IMMUNOGLOBULIN G
     Dosage: 10 G, UNK
     Route: 042
     Dates: start: 20141218, end: 20141218
  21. VFEND [Concomitant]
     Active Substance: VORICONAZOLE
     Dosage: 200 MG, UNK
     Route: 048
     Dates: start: 20140822
  22. SANORIN                            /00419602/ [Concomitant]
     Dosage: 1 GTT, UNK
     Route: 045
     Dates: start: 20150210, end: 20150210

REACTIONS (1)
  - Oedema peripheral [Recovered/Resolved]

NARRATIVE: CASE EVENT DATE: 20150221
